FAERS Safety Report 25482960 (Version 1)
Quarter: 2025Q2

REPORT INFORMATION
  Report Type: Spontaneous
  Country: US (occurrence: None)
  Receive Date: 20250625
  Receipt Date: 20250625
  Transmission Date: 20250717
  Serious: Yes (Other)
  Sender: FDA-CTU
  Company Number: None

PATIENT
  Age: 66 Year
  Sex: Female
  Weight: 45.9 kg

DRUGS (1)
  1. LORBRENA [Suspect]
     Active Substance: LORLATINIB
     Indication: Neoplasm malignant
     Dosage: FREQUENCY : TWICE A DAY;?
     Route: 048
     Dates: start: 20250419

REACTIONS (3)
  - Peripheral swelling [None]
  - Hypoaesthesia [None]
  - Fatigue [None]

NARRATIVE: CASE EVENT DATE: 20250501
